FAERS Safety Report 10238123 (Version 1)
Quarter: 2014Q2

REPORT INFORMATION
  Report Type: Report from Study
  Country: US (occurrence: US)
  Receive Date: 20140616
  Receipt Date: 20140616
  Transmission Date: 20141212
  Serious: Yes (Hospitalization)
  Sender: FDA-Public Use
  Company Number: PHEH2014US011995

PATIENT
  Age: 29 Year
  Sex: Male
  Weight: 88.44 kg

DRUGS (3)
  1. TOBI PODHALER [Suspect]
     Indication: CYSTIC FIBROSIS
     Dosage: 112 MG, BID
     Route: 055
  2. ALBUTEROL [Concomitant]
     Dosage: UNK UKN, UNK
  3. PULMOZYME [Concomitant]
     Dosage: UNK UKN, UNK

REACTIONS (2)
  - Condition aggravated [Recovered/Resolved]
  - Cystic fibrosis [Recovered/Resolved]
